FAERS Safety Report 17347363 (Version 1)
Quarter: 2020Q1

REPORT INFORMATION
  Report Type: Report from Study
  Country: US (occurrence: US)
  Receive Date: 20200129
  Receipt Date: 20200129
  Transmission Date: 20200409
  Serious: No
  Sender: FDA-Public Use
  Company Number: US-EXELIXIS-CABO-19021983

PATIENT
  Age: 74 Year
  Sex: Female

DRUGS (9)
  1. LEVOTHYROXINE SODIUM. [Concomitant]
     Active Substance: LEVOTHYROXINE SODIUM
  2. CABOMETYX [Suspect]
     Active Substance: CABOZANTINIB S-MALATE
     Indication: METASTASES TO LIVER
  3. LOSARTAN POTASSIUM. [Concomitant]
     Active Substance: LOSARTAN POTASSIUM
     Dosage: UNK
  4. TRAMADOL HCL [Concomitant]
     Active Substance: TRAMADOL HYDROCHLORIDE
     Dosage: UNK
  5. STOOL SOFTENER (DOCUSATE) [Concomitant]
     Active Substance: DOCUSATE
     Dosage: UNK
  6. CABOMETYX [Suspect]
     Active Substance: CABOZANTINIB S-MALATE
     Indication: METASTASES TO LUNG
     Dosage: 20 MG, QD
     Route: 048
  7. FLUOXETINE HCL [Concomitant]
     Active Substance: FLUOXETINE HYDROCHLORIDE
     Dosage: UNK
  8. CABOMETYX [Suspect]
     Active Substance: CABOZANTINIB S-MALATE
     Indication: RENAL CANCER
     Dosage: 60 MG, QD
     Route: 048
     Dates: start: 20190606
  9. MAGNESIUM ACETATE [Concomitant]
     Active Substance: MAGNESIUM ACETATE
     Dosage: UNK

REACTIONS (11)
  - Pyrexia [Unknown]
  - Stomatitis [Recovered/Resolved]
  - Nausea [Unknown]
  - Ear pain [Unknown]
  - Epistaxis [Unknown]
  - Genital rash [Unknown]
  - Fatigue [Unknown]
  - Pain [Unknown]
  - Rash [Unknown]
  - Abdominal distension [Unknown]
  - Cystitis [Unknown]

NARRATIVE: CASE EVENT DATE: 201906
